FAERS Safety Report 8808466 (Version 1)
Quarter: 2012Q4

REPORT INFORMATION
  Report Type: 
  Country: US (occurrence: US)
  Receive Date: 20120926
  Receipt Date: 20120926
  Transmission Date: 20130627
  Serious: Yes (Hospitalization, Other)
  Sender: FDA-Public Use
  Company Number: US-ELI_LILLY_AND_COMPANY-US201209004093

PATIENT
  Age: 72 None
  Sex: Female

DRUGS (15)
  1. HUMALOG 25% LISPRO, 75% NPL [Suspect]
     Indication: DIABETES MELLITUS
     Dosage: 25 u, each morning
  2. HUMALOG 25% LISPRO, 75% NPL [Suspect]
     Dosage: 22 u, each evening
  3. HUMALOG LISPRO [Suspect]
     Indication: DIABETES MELLITUS
  4. INSULIN [Concomitant]
  5. PLAVIX [Concomitant]
  6. CRESTOR [Concomitant]
  7. TERAZOSIN [Concomitant]
     Dosage: 2 mg, UNK
  8. TRIAMTERENE AND HYDROCHLOROTHIAZID [Concomitant]
     Dosage: UNK, prn
  9. GABAPENTIN [Concomitant]
     Dosage: 300 mg, bid
  10. DILT-XR [Concomitant]
     Indication: BLOOD PRESSURE ABNORMAL
     Dosage: 180 mg, bid
  11. WARFARIN SODIUM [Concomitant]
     Indication: ANTICOAGULANT THERAPY
     Dosage: 5 mg, unknown
  12. ALENDRONATE [Concomitant]
     Dosage: 70 mg, weekly (1/W)
  13. LOSARTAN + HIDROCLOROTIAZIDA [Concomitant]
     Dosage: 1 DF, qd
  14. PRAVASTAN [Concomitant]
     Indication: BLOOD CHOLESTEROL ABNORMAL
     Dosage: 40 mg, bid
  15. ASPIRIN [Concomitant]
     Dosage: 81 mg, qd

REACTIONS (5)
  - Cardiac operation [Unknown]
  - Leg amputation [Unknown]
  - Vascular operation [Unknown]
  - Toe amputation [Unknown]
  - Urticaria [Unknown]
